FAERS Safety Report 6682800-0 (Version None)
Quarter: 2010Q2

REPORT INFORMATION
  Report Type: 
  Country: None (occurrence: None)
  Receive Date: 20100413
  Receipt Date: 20100329
  Transmission Date: 20101027
  Serious: Yes (Hospitalization)
  Sender: FDA-Public Use
  Company Number: KV200801115

PATIENT
  Age: 40 Year
  Sex: Female
  Weight: 127 kg

DRUGS (53)
  1. MORPHINE SULFATE [Suspect]
     Indication: PAIN
     Dosage: 15 MG, QID, ORAL
     Route: 048
     Dates: start: 20081001
  2. MORPHINE SULFATE [Suspect]
     Indication: PAIN
     Dosage: 30 MG, TID, ORAL
     Route: 048
     Dates: start: 20050117
  3. KADIAN [Concomitant]
  4. NEXIUM [Concomitant]
  5. OXYCODONE AND ACETAMINOPHEN [Concomitant]
  6. HYDROCODONE BITARTRATE AND ACETAMINOPHEN [Concomitant]
  7. REQUIP [Concomitant]
  8. AMBIEN [Concomitant]
  9. XANAX [Concomitant]
  10. TOPAMAX [Concomitant]
  11. CYMBALTA [Concomitant]
  12. BACLOFEN [Concomitant]
  13. LODINE [Concomitant]
  14. VITAMIN TAB [Concomitant]
  15. CALCIUM [Concomitant]
  16. SENOKOT /00142201/ (SENNA ALEXANDRINA) [Concomitant]
  17. CEPHALEXIN [Concomitant]
  18. CEFAZOLIN [Concomitant]
  19. FIORICET [Concomitant]
  20. HYOSCYAMINE (HYOSCYAMINE) [Concomitant]
  21. DILAUDID [Concomitant]
  22. ACTIGALL [Concomitant]
  23. MELATONIN [Concomitant]
  24. FLEXERIL [Concomitant]
  25. ULTRAM [Concomitant]
  26. ZANAFLEX [Concomitant]
  27. METHYLPREDNISOLONE [Concomitant]
  28. PHENERGAN [Concomitant]
  29. MIRALAX [Concomitant]
  30. CELEBREX [Concomitant]
  31. ROBAXIN [Concomitant]
  32. DIPHENHYDRAMINE HCL [Concomitant]
  33. FENTANYL-100 [Concomitant]
  34. QUININE [Concomitant]
  35. MOTRIN [Concomitant]
  36. TYLENOL-500 [Concomitant]
  37. POTASSIUM CHLORIDE [Concomitant]
  38. LOPRESSOR [Concomitant]
  39. ASPIRIN [Concomitant]
  40. DIAZEPAM [Concomitant]
  41. PROTONIX [Concomitant]
  42. ZOFRAN [Concomitant]
  43. DULCOLAX [Concomitant]
  44. ALBUTEROL [Concomitant]
  45. TYLENOL-500 [Concomitant]
  46. MYLANTA [Concomitant]
  47. LIDODERM (LICODERM) [Concomitant]
  48. KEFLEX /00145501/ (CEFALEXIN) [Concomitant]
  49. ZOSYN [Concomitant]
  50. MORPHINE [Concomitant]
  51. CLONZEPAM (CLONAZEPAM) [Concomitant]
  52. PEPCID  /00706001/ (FAMOTIDINE) [Concomitant]
  53. NEURONTIN [Concomitant]

REACTIONS (64)
  - ABDOMINAL DISTENSION [None]
  - ABDOMINAL PAIN [None]
  - ABDOMINAL PAIN UPPER [None]
  - ANXIETY [None]
  - BACK PAIN [None]
  - BALANCE DISORDER [None]
  - BREAST ABSCESS [None]
  - BREAST CELLULITIS [None]
  - CHEST PAIN [None]
  - COLONIC POLYP [None]
  - CONSTIPATION [None]
  - COUGH [None]
  - DIARRHOEA HAEMORRHAGIC [None]
  - DIVERTICULUM [None]
  - DIZZINESS [None]
  - DRUG ABUSE [None]
  - DRUG INEFFECTIVE [None]
  - DRUG SCREEN POSITIVE [None]
  - DYSPHAGIA [None]
  - DYSPNOEA [None]
  - EMOTIONAL DISORDER [None]
  - ENDOMETRIOSIS [None]
  - FAECAL INCONTINENCE [None]
  - FALL [None]
  - FATIGUE [None]
  - FIBROMYALGIA [None]
  - FLATULENCE [None]
  - GALACTORRHOEA [None]
  - GASTROINTESTINAL ULCER [None]
  - HAEMATOCHEZIA [None]
  - HEADACHE [None]
  - HEART RATE INCREASED [None]
  - HYPERHIDROSIS [None]
  - HYPERTENSION [None]
  - HYPOAESTHESIA [None]
  - INSOMNIA [None]
  - INTERNAL HERNIA [None]
  - INTESTINAL OBSTRUCTION [None]
  - JOINT INJURY [None]
  - JOINT SPRAIN [None]
  - MALABSORPTION [None]
  - MALNUTRITION [None]
  - MUCOUS STOOLS [None]
  - MUSCULAR WEAKNESS [None]
  - NAUSEA [None]
  - NEURITIS [None]
  - OEDEMA [None]
  - OEDEMA PERIPHERAL [None]
  - PAIN [None]
  - PANIC ATTACK [None]
  - PARAESTHESIA [None]
  - PATELLOFEMORAL PAIN SYNDROME [None]
  - POLYDIPSIA [None]
  - POLYURIA [None]
  - PSYCHOMOTOR SKILLS IMPAIRED [None]
  - SLEEP APNOEA SYNDROME [None]
  - SPHINCTER OF ODDI DYSFUNCTION [None]
  - SPINAL COLUMN STENOSIS [None]
  - TEMPERATURE INTOLERANCE [None]
  - THYROID NEOPLASM [None]
  - URINARY INCONTINENCE [None]
  - VOMITING [None]
  - WEIGHT INCREASED [None]
  - WITHDRAWAL SYNDROME [None]
